FAERS Safety Report 4663412-7 (Version None)
Quarter: 2005Q2

REPORT INFORMATION
  Report Type: 
  Country: None (occurrence: None)
  Receive Date: 20050513
  Receipt Date: 20050503
  Transmission Date: 20051028
  Serious: Yes (Hospitalization)
  Sender: FDA-Public Use
  Company Number: 2005BI006709

PATIENT
  Age: 41 Year
  Sex: Female
  Weight: 42.6381 kg

DRUGS (9)
  1. AVONEX [Suspect]
     Indication: MULTIPLE SCLEROSIS
     Dosage: 30 UG;QW;IM
     Route: 030
     Dates: start: 20041201
  2. DILANTIN [Concomitant]
  3. NEURONTIN [Concomitant]
  4. LOPRESSOR [Concomitant]
  5. COUMADIN [Concomitant]
  6. PLAQUENIL [Concomitant]
  7. PREDNISONE [Concomitant]
  8. LEXAPRO [Concomitant]
  9. ATIVAN [Concomitant]

REACTIONS (5)
  - DIARRHOEA [None]
  - NAUSEA [None]
  - VASCULITIS GASTROINTESTINAL [None]
  - VOMITING [None]
  - WEIGHT DECREASED [None]
